FAERS Safety Report 18656796 (Version 1)
Quarter: 2020Q4

REPORT INFORMATION
  Report Type: Spontaneous
  Country: US (occurrence: US)
  Receive Date: 20201223
  Receipt Date: 20201223
  Transmission Date: 20210114
  Serious: No
  Sender: FDA-Public Use
  Company Number: US-ABBVIE-20K-163-3250081-00

PATIENT
  Age: 22 Year
  Sex: Female
  Weight: 90.8 kg

DRUGS (3)
  1. LUPRON DEPOT [Suspect]
     Active Substance: LEUPROLIDE ACETATE
     Indication: PREMENSTRUAL DYSPHORIC DISORDER
     Route: 030
     Dates: start: 2018
  2. LUPRON DEPOT [Suspect]
     Active Substance: LEUPROLIDE ACETATE
     Indication: PREMENSTRUAL SYNDROME
  3. ZOLOFT [Concomitant]
     Active Substance: SERTRALINE HYDROCHLORIDE
     Indication: PRODUCT USED FOR UNKNOWN INDICATION

REACTIONS (3)
  - Blood luteinising hormone decreased [Not Recovered/Not Resolved]
  - Blood follicle stimulating hormone abnormal [Not Recovered/Not Resolved]
  - Oestradiol decreased [Not Recovered/Not Resolved]

NARRATIVE: CASE EVENT DATE: 202001
